FAERS Safety Report 5255834-0 (Version None)
Quarter: 2007Q1

REPORT INFORMATION
  Report Type: 
  Country: None (occurrence: None)
  Receive Date: 20070301
  Receipt Date: 20070222
  Transmission Date: 20070707
  Serious: Yes (Hospitalization)
  Sender: FDA-Public Use
  Company Number: 2007-00925

PATIENT
  Age: 23 Month
  Sex: Male

DRUGS (1)
  1. NAPROXEN [Suspect]
     Indication: JUVENILE ARTHRITIS
     Dosage: ORAL
     Route: 048

REACTIONS (2)
  - CONVULSION [None]
  - HISTIOCYTOSIS HAEMATOPHAGIC [None]
